FAERS Safety Report 8507162-5 (Version None)
Quarter: 2012Q3

REPORT INFORMATION
  Report Type: 
  Country: None (occurrence: None)
  Receive Date: 20120712
  Receipt Date: 20120709
  Transmission Date: 20120928
  Serious: Yes (Other)
  Sender: FDA-Public Use
  Company Number: PHHY2012US059231

PATIENT
  Age: 68 Year

DRUGS (4)
  1. VORICONAZOLE [Suspect]
     Dosage: 200 MG, QD
     Route: 048
  2. VORICONAZOLE [Suspect]
     Dosage: 6 MG/KG, Q12H
     Route: 042
  3. VORICONAZOLE [Suspect]
     Dosage: 200 MG, BID
     Route: 048
  4. TACROLIMUS [Suspect]
     Indication: IMMUNOSUPPRESSANT DRUG THERAPY

REACTIONS (1)
  - NEUROTOXICITY [None]
